FAERS Safety Report 5270657-4 (Version None)
Quarter: 2007Q1

REPORT INFORMATION
  Report Type: 
  Country: None (occurrence: None)
  Receive Date: 20070321
  Receipt Date: 20070312
  Transmission Date: 20070707
  Serious: Yes (Other)
  Sender: FDA-Public Use
  Company Number: FR-ELI_LILLY_AND_COMPANY-FR200701002862

PATIENT
  Age: 63 Year
  Sex: Male
  Weight: 66 kg

DRUGS (6)
  1. ZYPREXA [Suspect]
     Indication: BIPOLAR DISORDER
     Dosage: 7.5 MG, DAILY (1/D)
     Route: 048
     Dates: start: 20060502
  2. TERCIAN [Concomitant]
     Route: 048
  3. BIPRETERAX [Concomitant]
     Route: 048
  4. TAHOR [Concomitant]
     Route: 048
  5. LORAZEPAM [Concomitant]
     Route: 048
  6. KARDEGIC [Concomitant]
     Route: 048

REACTIONS (1)
  - HYPERTHYROIDISM [None]
